FAERS Safety Report 13512256 (Version 1)
Quarter: 2017Q2

REPORT INFORMATION
  Report Type: Spontaneous
  Country: US (occurrence: US)
  Receive Date: 20170504
  Receipt Date: 20170504
  Transmission Date: 20170830
  Serious: Yes (Other)
  Sender: FDA-Public Use
  Company Number: None

PATIENT
  Age: 45 Year
  Sex: Female
  Weight: 58 kg

DRUGS (2)
  1. TECFIDERA [Suspect]
     Active Substance: DIMETHYL FUMARATE
     Indication: PROGRESSIVE RELAPSING MULTIPLE SCLEROSIS
     Dosage: ?          QUANTITY:56 CAPSULE(S);?TWICE A DAY ORAL
     Route: 048
     Dates: start: 20161012, end: 20170502
  2. VITAMIN D [Concomitant]
     Active Substance: CHOLECALCIFEROL

REACTIONS (5)
  - Back pain [None]
  - Erythema [None]
  - Pruritus [None]
  - Vaginal haemorrhage [None]
  - Flushing [None]

NARRATIVE: CASE EVENT DATE: 20170502
